FAERS Safety Report 8544538-4 (Version None)
Quarter: 2012Q3

REPORT INFORMATION
  Report Type: 
  Country: None (occurrence: None)
  Receive Date: 20120727
  Receipt Date: 20120726
  Transmission Date: 20120928
  Serious: No
  Sender: FDA-Public Use
  Company Number: US-PFIZER INC-2012181750

PATIENT
  Sex: Female

DRUGS (2)
  1. PRISTIQ [Suspect]
     Indication: DEPRESSION
     Dosage: 50 MG, 1X/DAY
     Route: 048
     Dates: start: 20120101
  2. AMITRIPTYLINE [Concomitant]
     Dosage: UNK

REACTIONS (5)
  - MUSCLE TWITCHING [None]
  - VOMITING [None]
  - DIARRHOEA [None]
  - NAUSEA [None]
  - DIZZINESS [None]
